FAERS Safety Report 5895381-6 (Version None)
Quarter: 2008Q3

REPORT INFORMATION
  Report Type: 
  Country: None (occurrence: None)
  Receive Date: 20080923
  Receipt Date: 20080923
  Transmission Date: 20090109
  Serious: Yes (Life-Threatening, Hospitalization)
  Sender: FDA-Public Use
  Company Number: None

PATIENT
  Age: 24 Month
  Sex: Male
  Weight: 14 kg

DRUGS (1)
  1. INFASURF -CALFACTANT- 35MG/ML FOREST PHARMACEUTICALS INC [Suspect]
     Indication: ACUTE RESPIRATORY DISTRESS SYNDROME
     Dosage: 80MG/M2 DIVEDED INTO 4 ALIQUOT X1 ENDOTRACHEAL
     Route: 007
     Dates: start: 20080918, end: 20080918

REACTIONS (3)
  - CARDIOVASCULAR DISORDER [None]
  - HYPOTENSION [None]
  - SINUS BRADYCARDIA [None]
